FAERS Safety Report 18773366 (Version 1)
Quarter: 2021Q1

REPORT INFORMATION
  Report Type: Spontaneous
  Country: US (occurrence: US)
  Receive Date: 20210121
  Receipt Date: 20210121
  Transmission Date: 20210419
  Serious: Yes (Death)
  Sender: FDA-Public Use
  Company Number: None

PATIENT
  Sex: Female

DRUGS (35)
  1. ESOMEPRA MAG [Concomitant]
  2. FUROSEMIDE. [Concomitant]
     Active Substance: FUROSEMIDE
  3. LORATADINE. [Concomitant]
     Active Substance: LORATADINE
  4. MELATONIN [Concomitant]
     Active Substance: MELATONIN
  5. ALBUTEROL NEB [Concomitant]
     Active Substance: ALBUTEROL
  6. COSOPT PF [Concomitant]
     Active Substance: DORZOLAMIDE HYDROCHLORIDE\TIMOLOL MALEATE
  7. ACETAMINOPHN [Concomitant]
  8. METOPROL SUC ER [Concomitant]
     Active Substance: METOPROLOL SUCCINATE
  9. TRAVATAN Z [Concomitant]
     Active Substance: TRAVOPROST
  10. NEXIUM [Concomitant]
     Active Substance: ESOMEPRAZOLE MAGNESIUM
  11. PACERONE [Concomitant]
     Active Substance: AMIODARONE HYDROCHLORIDE
  12. PROCHLORPER [Concomitant]
  13. AMLODIPINE [Concomitant]
     Active Substance: AMLODIPINE BESYLATE
  14. CITALOPRAM [Concomitant]
     Active Substance: CITALOPRAM HYDROBROMIDE
  15. POLYETH GLYC [Concomitant]
     Active Substance: POLYETHYLENE GLYCOLS
  16. SENOKOT?S [Concomitant]
     Active Substance: DOCUSATE SODIUM\SENNOSIDES
  17. SUCRALFATE. [Concomitant]
     Active Substance: SUCRALFATE
  18. VITAMIN D3 [Concomitant]
     Active Substance: CHOLECALCIFEROL
  19. DAURISMO [Suspect]
     Active Substance: GLASDEGIB
     Indication: ACUTE MYELOID LEUKAEMIA
     Route: 048
     Dates: start: 20201016
  20. ALLOPURINOL. [Concomitant]
     Active Substance: ALLOPURINOL
  21. BUSPIRONE [Concomitant]
     Active Substance: BUSPIRONE HYDROCHLORIDE
  22. CENTRUM SILVER [Concomitant]
     Active Substance: MINERALS\VITAMINS
  23. LORAZEPAM. [Concomitant]
     Active Substance: LORAZEPAM
  24. TRAVOPROST. [Concomitant]
     Active Substance: TRAVOPROST
  25. CENTRUM CHW [Concomitant]
  26. DORZOL/TIMOL [Concomitant]
  27. GAS?X EX?STR [Concomitant]
  28. SIMVASTATIN. [Concomitant]
     Active Substance: SIMVASTATIN
  29. SPIRIVA [Concomitant]
     Active Substance: TIOTROPIUM BROMIDE MONOHYDRATE
  30. TYLENOL [Concomitant]
     Active Substance: ACETAMINOPHEN
  31. VITAMIN D [Concomitant]
     Active Substance: VITAMIN D NOS
  32. DIPHENHYDRAM [Concomitant]
  33. ELIQUIS [Concomitant]
     Active Substance: APIXABAN
  34. FAMOTIDINE. [Concomitant]
     Active Substance: FAMOTIDINE
  35. GAS?X [Concomitant]
     Active Substance: DIMETHICONE

REACTIONS (1)
  - Death [None]
